FAERS Safety Report 4457868-2 (Version None)
Quarter: 2004Q3

REPORT INFORMATION
  Report Type: 
  Country: None (occurrence: None)
  Receive Date: 20040924
  Receipt Date: 20040916
  Transmission Date: 20050211
  Serious: Yes (Other)
  Sender: FDA-Public Use
  Company Number: JP-JNJFOC-20040603655

PATIENT
  Sex: Male

DRUGS (14)
  1. REMICADE [Suspect]
     Indication: RHEUMATOID ARTHRITIS
     Route: 042
  2. ISONIAZID [Concomitant]
     Route: 049
  3. RIFADIN [Concomitant]
     Route: 049
  4. EBUTOL [Concomitant]
     Route: 049
  5. PYDOXAL [Concomitant]
     Route: 049
  6. MEDROL [Concomitant]
     Route: 049
  7. RHEUMATREX [Concomitant]
     Route: 049
  8. VOLTAREN [Concomitant]
     Route: 049
  9. SELBEX [Concomitant]
     Route: 049
  10. DICLOFENAC SODIUM [Concomitant]
  11. METHOTREXATE [Concomitant]
  12. METHYLPREDNISOLONE [Concomitant]
  13. PYRIDOXAL PHOSPHATE [Concomitant]
  14. TEPRENONE [Concomitant]

REACTIONS (3)
  - LYMPHADENOPATHY [None]
  - PULMONARY TUBERCULOSIS [None]
  - SKIN TEST POSITIVE [None]
